FAERS Safety Report 9010337 (Version 1)
Quarter: 2013Q1

REPORT INFORMATION
  Report Type: Spontaneous
  Country: US (occurrence: US)
  Receive Date: 20130109
  Receipt Date: 20130109
  Transmission Date: 20140127
  Serious: No
  Sender: FDA-Public Use
  Company Number: US-ASTRAZENECA-2013SE01260

PATIENT
  Age: 30 Year
  Sex: Male
  Weight: 77.1 kg

DRUGS (2)
  1. NEXIUM [Suspect]
     Route: 048
     Dates: start: 2010, end: 20130102
  2. NEXIUM [Suspect]
     Route: 048

REACTIONS (4)
  - Dyspepsia [Unknown]
  - Aphagia [Unknown]
  - Vomiting [Unknown]
  - Drug dose omission [Unknown]
